FAERS Safety Report 6794728-6 (Version None)
Quarter: 2010Q2

REPORT INFORMATION
  Report Type: 
  Country: None (occurrence: None)
  Receive Date: 20100624
  Receipt Date: 20100624
  Transmission Date: 20101027
  Serious: Yes (Hospitalization)
  Sender: FDA-Public Use
  Company Number: None

PATIENT
  Sex: Female
  Weight: 62 kg

DRUGS (1)
  1. ISOVUE-370 [Suspect]
     Dosage: 30 ML ONCE IV
     Route: 042
     Dates: start: 20090331

REACTIONS (1)
  - INFUSION SITE EXTRAVASATION [None]
